FAERS Safety Report 16383575 (Version 1)
Quarter: 2019Q2

REPORT INFORMATION
  Report Type: Spontaneous
  Country: US (occurrence: US)
  Receive Date: 20190603
  Receipt Date: 20190603
  Transmission Date: 20190711
  Serious: Yes (Other)
  Sender: FDA-Public Use
  Company Number: US-SA-2019SA043768

PATIENT
  Age: 36 Year
  Sex: Female
  Weight: 64.41 kg

DRUGS (4)
  1. NEOSAR [Concomitant]
     Active Substance: CYCLOPHOSPHAMIDE
  2. TAXOTERE [Suspect]
     Active Substance: DOCETAXEL
     Indication: BREAST CANCER FEMALE
     Dosage: 132 MG, Q3W
     Route: 042
     Dates: start: 20140520, end: 20140520
  3. TAXOTERE [Suspect]
     Active Substance: DOCETAXEL
     Dosage: 132 MG, Q3W
     Route: 042
     Dates: start: 20140721, end: 20140721
  4. CYTOXAN [Concomitant]
     Active Substance: CYCLOPHOSPHAMIDE

REACTIONS (1)
  - Alopecia [Not Recovered/Not Resolved]
